FAERS Safety Report 8979468 (Version 1)
Quarter: 2012Q4

REPORT INFORMATION
  Report Type: 
  Country: US (occurrence: US)
  Receive Date: 20121221
  Receipt Date: 20121221
  Transmission Date: 20130627
  Serious: No
  Sender: FDA-Public Use
  Company Number: US-AMGEN-USASP2012072596

PATIENT
  Age: 53 Year
  Sex: Female
  Weight: 66.67 kg

DRUGS (10)
  1. PROLIA [Suspect]
     Indication: OSTEOPOROSIS
     Dosage: 60 mg, q6mo
     Route: 058
     Dates: start: 20111110, end: 20120517
  2. LASIX                              /00032601/ [Concomitant]
     Indication: HYPERTENSION
     Dosage: 20 mg, qd
     Route: 048
     Dates: start: 20060616
  3. EXFORGE [Concomitant]
     Indication: HYPERTENSION
     Dosage: UNK UNK, qd
     Route: 048
     Dates: start: 20111024
  4. KCL [Concomitant]
     Indication: HYPOKALAEMIA
     Dosage: 10 mEq, qd
     Route: 048
     Dates: start: 20050510
  5. LISINOPRIL [Concomitant]
     Indication: HYPERTENSION
     Dosage: 20 mg, qd
     Route: 048
     Dates: start: 20060427
  6. NEXIUM                             /01479302/ [Concomitant]
     Indication: GASTROOESOPHAGEAL REFLUX DISEASE
     Dosage: 20 mg, qd
     Route: 048
     Dates: start: 20110223
  7. LUNESTA [Concomitant]
     Indication: INSOMNIA
     Dosage: 2 mg, qhs
     Route: 048
     Dates: start: 20111205
  8. MIRAPEX [Concomitant]
     Indication: RESTLESS LEGS SYNDROME
     Dosage: 0.5 mg, qhs
     Route: 048
     Dates: start: 20090116
  9. VITAMIN B 12 [Concomitant]
     Indication: VITAMIN B12 DEFICIENCY
     Dosage: 1000 mug, qmo
     Route: 030
     Dates: start: 20100519
  10. VITAMIN D                          /00107901/ [Concomitant]
     Indication: VITAMIN D DEFICIENCY
     Dosage: UNK UNK, qd
     Route: 048
     Dates: start: 20120327

REACTIONS (1)
  - Bone pain [Recovered/Resolved]
